FAERS Safety Report 11798141 (Version 1)
Quarter: 2015Q4

REPORT INFORMATION
  Report Type: Report from Study
  Country: CA (occurrence: CA)
  Receive Date: 20151203
  Receipt Date: 20151203
  Transmission Date: 20160305
  Serious: Yes (Hospitalization)
  Sender: FDA-Public Use
  Company Number: CA-JNJFOC-20151126154

PATIENT
  Age: 65 Year
  Sex: Male

DRUGS (19)
  1. OXYNEO [Concomitant]
     Active Substance: OXYCODONE
     Dosage: 20MG TABLETS 0.5 TABLETS 4 TIMES DAILY
     Route: 065
  2. VENLAFAXINE [Concomitant]
     Active Substance: VENLAFAXINE HYDROCHLORIDE
     Dosage: 3 CAPSULES ONCE DAILY.
     Route: 065
  3. TYLENOL [Concomitant]
     Active Substance: ACETAMINOPHEN
     Dosage: 500MG TABLET 2 TABLETS.
     Route: 065
  4. RABEPRAZOLE [Concomitant]
     Active Substance: RABEPRAZOLE
     Route: 065
  5. CALCIUM CARBONATE. [Concomitant]
     Active Substance: CALCIUM CARBONATE
     Dosage: 2 TABLETS ONCE DAILY.
     Route: 048
  6. VITAMIN D [Concomitant]
     Active Substance: CHOLECALCIFEROL
     Dosage: 1000U
     Route: 065
  7. FLAMAZINE [Concomitant]
     Active Substance: SILVER SULFADIAZINE
     Route: 061
  8. DOVOBET [Concomitant]
     Active Substance: BETAMETHASONE\CALCIPOTRIENE
     Dosage: 50MCG-0.5MG/GRAM 1 APPLICATION 2 TIMES DAILY.
     Route: 065
  9. METHOTREXATE [Concomitant]
     Active Substance: METHOTREXATE
     Dosage: 25MG/MI VIAL 12.5MG 1 TIME WEEKLY.
     Route: 065
  10. SIMPONI [Suspect]
     Active Substance: GOLIMUMAB
     Indication: RHEUMATOID ARTHRITIS
     Dosage: EVERY 28DAYS
     Route: 058
     Dates: start: 20141027
  11. COVERSYL [Concomitant]
     Active Substance: PERINDOPRIL
     Route: 065
  12. METHOTREXATE [Concomitant]
     Active Substance: METHOTREXATE
     Route: 065
  13. FERROUS GLUCONATE [Concomitant]
     Active Substance: FERROUS GLUCONATE
     Dosage: 1 TABLET TWICE A DAY
     Route: 048
  14. FOLIC ACID. [Concomitant]
     Active Substance: FOLIC ACID
     Dosage: 5MG TABLET 1 TABLET 6 TIMES WEEKLY FOR 12 WEEKS EXCEPT SUNDAY (THE DAY OF METHOTREXATE.
     Route: 065
  15. SYNTHROID [Concomitant]
     Active Substance: LEVOTHYROXINE SODIUM
     Dosage: 50MCG
     Route: 065
  16. FENATYL [Concomitant]
     Active Substance: FENTANYL
     Dosage: 100MCG/HR PATCH 3 PATCHES EVERY 2 DAYS.
     Route: 065
  17. VITAMIN B12 [Concomitant]
     Active Substance: CYANOCOBALAMIN
     Dosage: 1 TABLET
  18. DILTIAZEM HYDROCHLORIDE. [Concomitant]
     Active Substance: DILTIAZEM HYDROCHLORIDE
     Route: 065
  19. LOVENOX [Concomitant]
     Active Substance: ENOXAPARIN SODIUM
     Dosage: 100MG/MI
     Route: 065

REACTIONS (2)
  - Cellulitis [Recovered/Resolved]
  - Cellulitis [Recovered/Resolved]

NARRATIVE: CASE EVENT DATE: 20151005
